FAERS Safety Report 24692621 (Version 1)
Quarter: 2024Q4

REPORT INFORMATION
  Report Type: Spontaneous
  Country: US (occurrence: None)
  Receive Date: 20241203
  Receipt Date: 20241203
  Transmission Date: 20250114
  Serious: Yes (Hospitalization)
  Sender: Public
  Company Number: None

PATIENT
  Age: 78 Year
  Sex: Male

DRUGS (3)
  1. DAPTOMYCIN [Suspect]
     Active Substance: DAPTOMYCIN
     Indication: Osteomyelitis
     Dosage: 1.00 G GRAM DILY INTVENOUS ?
     Route: 042
     Dates: start: 20240914, end: 20241003
  2. ROSUVASTATIN [Suspect]
     Active Substance: ROSUVASTATIN
  3. ATORVASTATIN [Suspect]
     Active Substance: ATORVASTATIN

REACTIONS (4)
  - Blood creatine phosphokinase increased [None]
  - Myalgia [None]
  - Rhabdomyolysis [None]
  - Therapy interrupted [None]

NARRATIVE: CASE EVENT DATE: 20241002
